FAERS Safety Report 5317371-4 (Version None)
Quarter: 2007Q2

REPORT INFORMATION
  Report Type: 
  Country: None (occurrence: None)
  Receive Date: 20070504
  Receipt Date: 20070425
  Transmission Date: 20071010
  Serious: Yes (Hospitalization, Disabling)
  Sender: FDA-Public Use
  Company Number: JP-MERCK-0702USA04251

PATIENT
  Age: 77 Year
  Sex: Female
  Weight: 45 kg

DRUGS (3)
  1. TIMOPTIC-XE [Suspect]
     Indication: GLAUCOMA
     Route: 047
     Dates: start: 20010501
  2. XALATAN [Suspect]
     Indication: GLAUCOMA
     Route: 047
     Dates: start: 20010601
  3. DIAMOX [Concomitant]
     Indication: GLAUCOMA
     Route: 048
     Dates: start: 20000831

REACTIONS (2)
  - HYPOPYON [None]
  - ULCERATIVE KERATITIS [None]
